FAERS Safety Report 8018140-7 (Version None)
Quarter: 2012Q1

REPORT INFORMATION
  Report Type: 
  Country: None (occurrence: None)
  Receive Date: 20120103
  Receipt Date: 20111227
  Transmission Date: 20120608
  Serious: Yes (Hospitalization)
  Sender: FDA-Public Use
  Company Number: US-VIROPHARMA INCORPORATED-20111108CINRY2438

PATIENT
  Sex: Female

DRUGS (3)
  1. CINRYZE [Suspect]
     Indication: HEREDITARY ANGIOEDEMA
     Dates: start: 20100201
  2. DURAGESIC-100 [Concomitant]
     Indication: PAIN
     Dosage: UNKNOWN
     Route: 065
  3. MORPHINE [Concomitant]
     Indication: PAIN
     Dosage: UNKNOWN
     Route: 065

REACTIONS (4)
  - ANGIOEDEMA [None]
  - HEREDITARY ANGIOEDEMA [None]
  - BRADYCARDIA [None]
  - OFF LABEL USE [None]
